FAERS Safety Report 25937793 (Version 1)
Quarter: 2025Q4

REPORT INFORMATION
  Report Type: Spontaneous
  Country: US (occurrence: US)
  Receive Date: 20251018
  Receipt Date: 20251018
  Transmission Date: 20260118
  Serious: No
  Sender: MERCK SHARP & DOHME LLC
  Company Number: US-009507513-2335346

PATIENT
  Age: 4 Year
  Sex: Female

DRUGS (3)
  1. PROQUAD [Suspect]
     Active Substance: MEASLES VIRUS STRAIN ENDERS^ ATTENUATED EDMONSTON LIVE ANTIGEN\MUMPS VIRUS STRAIN B LEVEL JERYL LYNN
     Dosage: TIME INTERVAL: TOTAL: TWO DOSE SERIES
     Route: 030
     Dates: start: 20250922, end: 20250922
  2. PROQUAD [Suspect]
     Active Substance: MEASLES VIRUS STRAIN ENDERS^ ATTENUATED EDMONSTON LIVE ANTIGEN\MUMPS VIRUS STRAIN B LEVEL JERYL LYNN
     Route: 065
     Dates: start: 2022, end: 2022
  3. STERILE DILUENT (WATER) [Suspect]
     Active Substance: WATER
     Route: 030
     Dates: start: 2022, end: 20250922

REACTIONS (1)
  - Herpes zoster [Not Recovered/Not Resolved]

NARRATIVE: CASE EVENT DATE: 20250925
